FAERS Safety Report 5481975-9 (Version None)
Quarter: 2007Q4

REPORT INFORMATION
  Report Type: 
  Country: None (occurrence: None)
  Receive Date: 20071005
  Receipt Date: 20070924
  Transmission Date: 20080405
  Serious: Yes (Other)
  Sender: FDA-Public Use
  Company Number: 2007-04334

PATIENT
  Age: 10 Year
  Sex: Male

DRUGS (2)
  1. METHYLPHYENIDATE HCL [Suspect]
     Indication: ATTENTION DEFICIT/HYPERACTIVITY DISORDER
     Dosage: 15 MG, BID, ORAL, 10 MG, BID, ORAL
     Route: 048
     Dates: start: 20070101, end: 20070101
  2. METHYLPHYENIDATE HCL [Suspect]
     Indication: ATTENTION DEFICIT/HYPERACTIVITY DISORDER
     Dosage: 15 MG, BID, ORAL, 10 MG, BID, ORAL
     Route: 048
     Dates: start: 20070101, end: 20070101

REACTIONS (2)
  - SOMATIC DELUSION [None]
  - SOMATIC HALLUCINATION [None]
